FAERS Safety Report 14031527 (Version 2)
Quarter: 2017Q4

REPORT INFORMATION
  Report Type: Spontaneous
  Country: JP (occurrence: JP)
  Receive Date: 20171002
  Receipt Date: 20171012
  Transmission Date: 20180321
  Serious: Yes (Death)
  Sender: FDA-Public Use
  Company Number: JP-DEPOMED, INC.-JP-2017DEP001910

PATIENT

DRUGS (1)
  1. TAPENTADOL HYDROCHLORIDE [Suspect]
     Active Substance: TAPENTADOL HYDROCHLORIDE
     Indication: CANCER PAIN
     Dosage: UNK
     Route: 048

REACTIONS (1)
  - Malignant neoplasm progression [Fatal]
